FAERS Safety Report 5707636-6 (Version None)
Quarter: 2008Q2

REPORT INFORMATION
  Report Type: 
  Country: None (occurrence: None)
  Receive Date: 20080416
  Receipt Date: 20080404
  Transmission Date: 20081010
  Serious: Yes (Other)
  Sender: FDA-Public Use
  Company Number: US-PFIZER INC-2008029845

PATIENT
  Sex: Male
  Weight: 70.454 kg

DRUGS (5)
  1. LYRICA [Suspect]
     Indication: FIBROMYALGIA
     Route: 048
  2. COLAZAL [Concomitant]
  3. PREVACID [Concomitant]
  4. CLONIDINE HCL [Concomitant]
  5. ALL OTHER THERAPEUTIC PRODUCTS [Concomitant]

REACTIONS (4)
  - ABDOMINAL DISTENSION [None]
  - ANURIA [None]
  - CONSTIPATION [None]
  - DRUG INEFFECTIVE [None]
